FAERS Safety Report 23409516 (Version 3)
Quarter: 2024Q1

REPORT INFORMATION
  Report Type: Spontaneous
  Country: JP (occurrence: JP)
  Receive Date: 20240117
  Receipt Date: 20240131
  Transmission Date: 20240409
  Serious: Yes (Hospitalization, Other)
  Sender: FDA-Public Use
  Company Number: JP-PFIZER INC-PV202400004583

PATIENT
  Age: 34 Year
  Sex: Female

DRUGS (22)
  1. METHOTREXATE SODIUM [Suspect]
     Active Substance: METHOTREXATE SODIUM
     Indication: Diffuse large B-cell lymphoma
     Dosage: 15 MG, CYCLIC (DAY 5; 15 MG/DOSE)
     Route: 039
  2. METHOTREXATE SODIUM [Suspect]
     Active Substance: METHOTREXATE SODIUM
     Dosage: 3000 MG/M2 (DAY 10, INFUSION,HIGH-DOSE), CYCLIC
     Route: 042
  3. METHOTREXATE SODIUM [Suspect]
     Active Substance: METHOTREXATE SODIUM
     Dosage: 15 MG/DOSE (DAY 15) CYCLIC
     Route: 037
  4. METHOTREXATE SODIUM [Suspect]
     Active Substance: METHOTREXATE SODIUM
     Dosage: 15 MG/DOSE (DAY 17) CYCLIC WITH 10 MG PDN
     Route: 037
  5. CYCLOPHOSPHAMIDE [Concomitant]
     Active Substance: CYCLOPHOSPHAMIDE
     Indication: Diffuse large B-cell lymphoma
     Dosage: 800 MG/M2 (DAY 1, INFUSION), CYCLIC
     Route: 042
  6. CYCLOPHOSPHAMIDE [Concomitant]
     Active Substance: CYCLOPHOSPHAMIDE
     Dosage: 200 MG/M2 (DAYS 2 TO 5, INFUSION), DAILY
     Route: 042
  7. VINCRISTINE [Concomitant]
     Active Substance: VINCRISTINE
     Indication: Diffuse large B-cell lymphoma
     Dosage: 1.5 MG/M2 (DAYS 1 AND 8, MAX 2 MG, INFUSION) CYCLIC
     Route: 042
  8. DOXORUBICIN [Concomitant]
     Active Substance: DOXORUBICIN
     Indication: Diffuse large B-cell lymphoma
     Dosage: 40 MG/M2 (DAY 1; INFUSION), CYCLIC
     Route: 042
  9. CYTARABINE [Concomitant]
     Active Substance: CYTARABINE
     Indication: Diffuse large B-cell lymphoma
     Dosage: 40 MG/DOSE (DAYS 1 AND 3) CYCLIC
     Route: 037
  10. CYTARABINE [Concomitant]
     Active Substance: CYTARABINE
     Dosage: 40 MG/DOSE (ON DAY 5) CYCLIC
     Route: 037
  11. CYTARABINE [Concomitant]
     Active Substance: CYTARABINE
     Dosage: 40 MG/DOSE (ON DAYS 7 AND 9) CYCLIC
     Route: 037
  12. PREDNISONE [Concomitant]
     Active Substance: PREDNISONE
     Dosage: 20 MG (DAYS 1 AND 3)
     Route: 037
  13. PREDNISONE [Concomitant]
     Active Substance: PREDNISONE
     Dosage: 10 MG (DAY 5)
     Route: 037
  14. PREDNISONE [Concomitant]
     Active Substance: PREDNISONE
     Dosage: 10 MG (DAY 15)
     Route: 037
  15. IFOSFAMIDE [Concomitant]
     Active Substance: IFOSFAMIDE
     Indication: Diffuse large B-cell lymphoma
     Dosage: 1500 MG/M2, DAILY (DAYS 1 TO 5; INFUSION)
     Route: 042
  16. ETOPOSIDE [Concomitant]
     Active Substance: ETOPOSIDE
     Indication: Diffuse large B-cell lymphoma
     Dosage: 60 MG/M2, DAILY (DAYS 1 TO 5; INFUSION)
     Route: 042
  17. CYTARABINE [Concomitant]
     Active Substance: CYTARABINE
     Indication: Diffuse large B-cell lymphoma
     Dosage: 2000 MG/M2, 2X/DAY (DAYS 1 AND 2;INFUSION COMPRISING FOUR DOSES IN TOTAL)
     Route: 042
  18. CYTARABINE [Concomitant]
     Active Substance: CYTARABINE
     Dosage: 40 MG, CYCLIC (DAYS 1 AND 3; 40 MG/DOSE)
     Route: 037
  19. CYTARABINE [Concomitant]
     Active Substance: CYTARABINE
     Dosage: 40 MG, CYCLIC (DAY 5,40 MG/DOSE)
     Route: 037
  20. CYTARABINE [Concomitant]
     Active Substance: CYTARABINE
     Dosage: 40 MG, CYCLIC (DAYS 7 AND 9; 40 MG/DOSE)
     Route: 037
  21. RITUXIMAB [Concomitant]
     Active Substance: RITUXIMAB
     Dosage: UNK
  22. CYANOCOBALAMIN [Concomitant]
     Active Substance: CYANOCOBALAMIN
     Dosage: 3000 UG, DAILY

REACTIONS (1)
  - Myelopathy [Recovered/Resolved]
